FAERS Safety Report 8401188-8 (Version None)
Quarter: 2012Q2

REPORT INFORMATION
  Report Type: 
  Country: None (occurrence: None)
  Receive Date: 20120530
  Receipt Date: 20120530
  Transmission Date: 20120825
  Serious: No
  Sender: FDA-Public Use
  Company Number: None

PATIENT

DRUGS (2)
  1. NAPHCON-A [Suspect]
     Indication: HYPERSENSITIVITY
     Dosage: 1 DROP 4X DAY OPHTHALMIC
     Route: 047
  2. NAPHCON-A [Suspect]
     Indication: DRY EYE
     Dosage: 1 DROP 4X DAY OPHTHALMIC
     Route: 047

REACTIONS (4)
  - PRODUCT QUALITY ISSUE [None]
  - APPLICATION SITE BURN [None]
  - LIQUID PRODUCT PHYSICAL ISSUE [None]
  - INCORRECT ROUTE OF DRUG ADMINISTRATION [None]
